FAERS Safety Report 18106338 (Version 2)
Quarter: 2020Q3

REPORT INFORMATION
  Report Type: Report from Study
  Country: US (occurrence: US)
  Receive Date: 20200803
  Receipt Date: 20200810
  Transmission Date: 20201103
  Serious: Yes (Hospitalization, Other)
  Sender: FDA-Public Use
  Company Number: US-PUMA BIOTECHNOLOGY, LTD.-2020US000784

PATIENT

DRUGS (8)
  1. NERLYNX [Suspect]
     Active Substance: NERATINIB
     Dosage: 6 TABLETS (240MG), DAILY
     Route: 048
     Dates: start: 20200403, end: 20200621
  2. NERLYNX [Suspect]
     Active Substance: NERATINIB
     Indication: BREAST CANCER STAGE III
     Dosage: 3 TABLETS (120MG), DAILY
     Route: 048
     Dates: start: 20200110, end: 202001
  3. SIMVASTATIN. [Concomitant]
     Active Substance: SIMVASTATIN
     Indication: HYPERLIPIDAEMIA
  4. NERLYNX [Suspect]
     Active Substance: NERATINIB
     Indication: HER2 POSITIVE BREAST CANCER
     Dosage: 6 TABLETS (240MG), DAILY
     Route: 048
     Dates: start: 20191115, end: 202001
  5. NERLYNX [Suspect]
     Active Substance: NERATINIB
     Dosage: 2 TABLETS (80 MG), DAILY
     Route: 048
     Dates: start: 20200210, end: 2020
  6. LOPERAMIDE [Concomitant]
     Active Substance: LOPERAMIDE
     Indication: PROPHYLAXIS AGAINST DIARRHOEA
  7. LETROZOLE. [Concomitant]
     Active Substance: LETROZOLE
     Indication: BREAST CANCER
  8. NERLYNX [Suspect]
     Active Substance: NERATINIB
     Dosage: 5 TABLETS (200 MG), DAILY
     Route: 048
     Dates: start: 2020, end: 20200402

REACTIONS (6)
  - Diarrhoea [Not Recovered/Not Resolved]
  - Colitis ulcerative [Not Recovered/Not Resolved]
  - Haemoglobin decreased [Unknown]
  - Weight decreased [Recovered/Resolved]
  - Fatigue [Not Recovered/Not Resolved]
  - Decreased appetite [Not Recovered/Not Resolved]

NARRATIVE: CASE EVENT DATE: 2020
